FAERS Safety Report 10004439 (Version 1)
Quarter: 2014Q1

REPORT INFORMATION
  Report Type: Spontaneous
  Country: US (occurrence: US)
  Receive Date: 20140312
  Receipt Date: 20140312
  Transmission Date: 20141002
  Serious: No
  Sender: FDA-Public Use
  Company Number: US-009507513-2012SP023108

PATIENT
  Age: 8 Year
  Sex: Female
  Weight: 22.68 kg

DRUGS (5)
  1. CLARITIN CHEWABLE TABLETS [Suspect]
     Dosage: UNK UNK, UNKNOWN
     Route: 048
     Dates: start: 201203
  2. CLARITIN CHEWABLE TABLETS [Suspect]
     Dosage: 10 MG, ONCE
     Route: 048
     Dates: start: 20120319
  3. CLARITIN CHEWABLE TABLETS [Suspect]
     Dosage: 10 MG, ONCE
     Route: 048
     Dates: start: 20120319
  4. PROVENTIL [Concomitant]
     Indication: LUNG DISORDER
     Dosage: UNK UNK, UNKNOWN
  5. [COMPOSITION UNSPECIFIED] [Concomitant]
     Indication: PRODUCT USED FOR UNKNOWN INDICATION
     Dosage: UNK UNK, UNKNOWN

REACTIONS (1)
  - Overdose [Unknown]
